FAERS Safety Report 21715876 (Version 1)
Quarter: 2022Q4

REPORT INFORMATION
  Report Type: Spontaneous
  Country: US (occurrence: None)
  Receive Date: 20221212
  Receipt Date: 20221212
  Transmission Date: 20230113
  Serious: No
  Sender: FDA-Public Use
  Company Number: 2022A393629

PATIENT
  Age: 1023 Month
  Sex: Female
  Weight: 77.1 kg

DRUGS (1)
  1. SYMBICORT [Suspect]
     Active Substance: BUDESONIDE\FORMOTEROL FUMARATE DIHYDRATE
     Indication: Asthma
     Dosage: TWO TIMES A DAY
     Route: 055

REACTIONS (5)
  - Laryngitis [Recovering/Resolving]
  - Product dose omission issue [Unknown]
  - Incorrect dose administered by device [Unknown]
  - Device use issue [Unknown]
  - Device delivery system issue [Unknown]

NARRATIVE: CASE EVENT DATE: 20221101
